FAERS Safety Report 6980012-4 (Version None)
Quarter: 2010Q3

REPORT INFORMATION
  Report Type: 
  Country: None (occurrence: None)
  Receive Date: 20100914
  Receipt Date: 20100906
  Transmission Date: 20110219
  Serious: Yes (Death, Other)
  Sender: FDA-Public Use
  Company Number: FR-PFIZER INC-2010112234

PATIENT
  Sex: Male

DRUGS (2)
  1. VIAGRA [Suspect]
     Dosage: 25 MG, UNK
  2. NITROGLYCERIN [Suspect]
     Dosage: UNK

REACTIONS (5)
  - DEATH [None]
  - ERUCTATION [None]
  - FLATULENCE [None]
  - LIMB DISCOMFORT [None]
  - VENTRICULAR EXTRASYSTOLES [None]
